FAERS Safety Report 5225758-3 (Version None)
Quarter: 2007Q1

REPORT INFORMATION
  Report Type: 
  Country: None (occurrence: None)
  Receive Date: 20070131
  Receipt Date: 20070131
  Transmission Date: 20070707
  Serious: Yes (Life-Threatening, Disabling, Other)
  Sender: FDA-Public Use
  Company Number: None

PATIENT
  Age: 8 Year
  Sex: Male
  Weight: 30.8446 kg

DRUGS (2)
  1. ABILIFY [Suspect]
     Indication: ATTENTION DEFICIT/HYPERACTIVITY DISORDER
     Dosage: 2.5 MILLIGRAMS 1 TIME DAILY PO
     Route: 048
     Dates: start: 20060101, end: 20070201
  2. ABILIFY [Suspect]
     Indication: OPPOSITIONAL DEFIANT DISORDER
     Dosage: 2.5 MILLIGRAMS 1 TIME DAILY PO
     Route: 048
     Dates: start: 20060101, end: 20070201

REACTIONS (1)
  - SUICIDAL IDEATION [None]
